FAERS Safety Report 19458645 (Version 2)
Quarter: 2024Q2

REPORT INFORMATION
  Report Type: Other
  Country: ES (occurrence: None)
  Receive Date: 20210624
  Receipt Date: 20240430
  Transmission Date: 20240715
  Serious: Yes (Death, Other)
  Sender: FDA-Public Use
  Company Number: ES-ROCHE-2850339

PATIENT

DRUGS (31)
  1. RIBAVIRIN [Suspect]
     Active Substance: RIBAVIRIN
     Indication: HIV infection
     Route: 065
  2. RIBAVIRIN [Suspect]
     Active Substance: RIBAVIRIN
     Indication: Hepatitis C
  3. SOFOSBUVIR [Suspect]
     Active Substance: SOFOSBUVIR
     Indication: HIV infection
     Route: 065
  4. SOFOSBUVIR [Suspect]
     Active Substance: SOFOSBUVIR
     Indication: Hepatitis C
  5. LEDIPASVIR [Suspect]
     Active Substance: LEDIPASVIR
     Indication: HIV infection
     Route: 065
  6. LEDIPASVIR [Suspect]
     Active Substance: LEDIPASVIR
     Indication: Hepatitis C
  7. OMBITASVIR\PARITAPREVIR\RITONAVIR [Suspect]
     Active Substance: OMBITASVIR\PARITAPREVIR\RITONAVIR
     Indication: HIV infection
     Route: 065
  8. OMBITASVIR\PARITAPREVIR\RITONAVIR [Suspect]
     Active Substance: OMBITASVIR\PARITAPREVIR\RITONAVIR
     Indication: Hepatitis C
  9. DASABUVIR [Suspect]
     Active Substance: DASABUVIR
     Indication: HIV infection
     Route: 065
  10. DASABUVIR [Suspect]
     Active Substance: DASABUVIR
     Indication: Hepatitis C
  11. SIMEPREVIR [Suspect]
     Active Substance: SIMEPREVIR
     Indication: HIV infection
     Route: 065
  12. SIMEPREVIR [Suspect]
     Active Substance: SIMEPREVIR
     Indication: Hepatitis C
  13. VELPATASVIR [Suspect]
     Active Substance: VELPATASVIR
     Indication: HIV infection
     Route: 065
  14. VELPATASVIR [Suspect]
     Active Substance: VELPATASVIR
     Indication: Hepatitis C
  15. PIBRENTASVIR [Suspect]
     Active Substance: PIBRENTASVIR
     Indication: HIV infection
     Route: 065
  16. PIBRENTASVIR [Suspect]
     Active Substance: PIBRENTASVIR
     Indication: Hepatitis C
  17. GLECAPREVIR [Suspect]
     Active Substance: GLECAPREVIR
     Indication: HIV infection
     Route: 065
  18. GLECAPREVIR [Suspect]
     Active Substance: GLECAPREVIR
     Indication: Hepatitis C
  19. GRAZOPREVIR [Suspect]
     Active Substance: GRAZOPREVIR
     Indication: HIV infection
     Route: 065
  20. GRAZOPREVIR [Suspect]
     Active Substance: GRAZOPREVIR
     Indication: Hepatitis C
  21. ELBASVIR [Suspect]
     Active Substance: ELBASVIR
     Indication: HIV infection
     Route: 065
  22. ELBASVIR [Suspect]
     Active Substance: ELBASVIR
     Indication: Hepatitis C
  23. LAMIVUDINE [Suspect]
     Active Substance: LAMIVUDINE
     Indication: HIV infection
     Route: 065
  24. LAMIVUDINE [Suspect]
     Active Substance: LAMIVUDINE
     Indication: Hepatitis C
  25. ABACAVIR [Suspect]
     Active Substance: ABACAVIR
     Indication: HIV infection
     Route: 065
  26. ABACAVIR [Suspect]
     Active Substance: ABACAVIR
     Indication: Hepatitis C
  27. EMTRICITABINE [Suspect]
     Active Substance: EMTRICITABINE
     Indication: HIV infection
     Route: 065
  28. EMTRICITABINE [Suspect]
     Active Substance: EMTRICITABINE
     Indication: Hepatitis C
  29. DACLATASVIR [Suspect]
     Active Substance: DACLATASVIR
     Indication: HIV infection
     Route: 065
  30. DACLATASVIR [Suspect]
     Active Substance: DACLATASVIR
     Indication: Hepatitis C
  31. TENOFOVIR DISOPROXIL FUMARATE [Suspect]
     Active Substance: TENOFOVIR DISOPROXIL FUMARATE
     Indication: HIV infection
     Route: 065

REACTIONS (14)
  - Hepatic failure [Fatal]
  - Infection [Fatal]
  - Hyperbilirubinaemia [Unknown]
  - Diarrhoea [Unknown]
  - Dermatitis [Unknown]
  - Therapy non-responder [Unknown]
  - Cardiovascular disorder [Unknown]
  - Fatigue [Unknown]
  - Gastrointestinal disorder [Unknown]
  - Mental disorder [Unknown]
  - Anaemia [Unknown]
  - Headache [Unknown]
  - Hypertransaminasaemia [Unknown]
  - Gilbert^s syndrome [Unknown]
